FAERS Safety Report 5348319-4 (Version None)
Quarter: 2007Q2

REPORT INFORMATION
  Report Type: 
  Country: None (occurrence: None)
  Receive Date: 20070605
  Receipt Date: 20070525
  Transmission Date: 20071010
  Serious: Yes (Death)
  Sender: FDA-Public Use
  Company Number: VISP-NO-0705S-0233

PATIENT
  Age: 54 Year
  Sex: Female

DRUGS (2)
  1. VISIPAQUE [Suspect]
     Indication: PULMONARY EMBOLISM
     Dosage: 70 ML, SINGLE DOSE, I.V.
     Route: 042
     Dates: start: 20070524, end: 20070524
  2. VISIPAQUE [Suspect]

REACTIONS (2)
  - BRONCHOSPASM [None]
  - FALL [None]
